FAERS Safety Report 15414992 (Version 4)
Quarter: 2019Q3

REPORT INFORMATION
  Report Type: Spontaneous
  Country: KR (occurrence: KR)
  Receive Date: 20180921
  Receipt Date: 20190826
  Transmission Date: 20191004
  Serious: Yes (Hospitalization, Other)
  Sender: FDA-Public Use
  Company Number: KR-009507513-1809KOR009671

PATIENT
  Age: 32 Year
  Sex: Female
  Weight: 41.2 kg

DRUGS (4)
  1. SULFAMETHOXAZOLE (+) TRIMETHOPRIM [Concomitant]
     Active Substance: SULFAMETHOXAZOLE\TRIMETHOPRIM
     Indication: INFECTION PROPHYLAXIS
     Dosage: 1 TABLET, QD
     Route: 048
     Dates: start: 20180813, end: 20180823
  2. NOXAFIL [Concomitant]
     Active Substance: POSACONAZOLE
     Dosage: UNK
     Dates: start: 20180820, end: 20180829
  3. ACYCLOVIR. [Concomitant]
     Active Substance: ACYCLOVIR
     Indication: INFECTION PROPHYLAXIS
     Dosage: 340 MG, BID
     Route: 042
     Dates: start: 20180721, end: 20180824
  4. NOXAFIL [Suspect]
     Active Substance: POSACONAZOLE
     Indication: ANTIFUNGAL PROPHYLAXIS
     Dosage: 5 MILLILITER, TID
     Route: 048
     Dates: start: 20180829, end: 20180831

REACTIONS (3)
  - Pancreatitis acute [Recovered/Resolved]
  - General physical health deterioration [Recovering/Resolving]
  - Myocardial necrosis marker increased [Recovered/Resolved]

NARRATIVE: CASE EVENT DATE: 201808
